FAERS Safety Report 7752336-4 (Version None)
Quarter: 2011Q3

REPORT INFORMATION
  Report Type: 
  Country: None (occurrence: None)
  Receive Date: 20110915
  Receipt Date: 20110902
  Transmission Date: 20111222
  Serious: Yes (Other)
  Sender: FDA-Public Use
  Company Number: US-ELI_LILLY_AND_COMPANY-US201107003526

PATIENT
  Sex: Male

DRUGS (4)
  1. TRILEPTAL [Concomitant]
     Dosage: 600 MG, QD
     Route: 048
  2. CYMBALTA [Suspect]
     Indication: MAJOR DEPRESSION
     Dosage: 60 MG, QD
     Dates: start: 20101213
  3. CLONAZEPAM [Concomitant]
     Dosage: 1 MG, TID
     Route: 048
  4. WELLBUTRIN SR [Concomitant]
     Dosage: 150 MG, QD

REACTIONS (1)
  - POST PROCEDURAL COMPLICATION [None]
